FAERS Safety Report 23617351 (Version 1)
Quarter: 2024Q1

REPORT INFORMATION
  Report Type: Spontaneous
  Country: US (occurrence: None)
  Receive Date: 20240309
  Receipt Date: 20240309
  Transmission Date: 20240409
  Serious: Yes (Disabling)
  Sender: FDA-Public Use
  Company Number: None

PATIENT
  Age: 56 Year
  Sex: Female
  Weight: 99 kg

DRUGS (12)
  1. HYDROXYCHLOROQUINE [Suspect]
     Active Substance: HYDROXYCHLOROQUINE
     Indication: Sjogren^s syndrome
     Dosage: 60 TABLETS DAILY ORAL
     Route: 048
     Dates: start: 20240223
  2. PILOCARPINE [Concomitant]
     Active Substance: PILOCARPINE
  3. VITAMIN B12 [Concomitant]
     Active Substance: CYANOCOBALAMIN
  4. BIOTIN [Concomitant]
     Active Substance: BIOTIN
  5. LYSINE [Concomitant]
     Active Substance: LYSINE
  6. SELENIUM [Concomitant]
     Active Substance: SELENIUM
  7. C [Concomitant]
  8. D [Concomitant]
  9. CALCIUM [Concomitant]
     Active Substance: CALCIUM
  10. ZIC [Concomitant]
  11. VICODIN [Concomitant]
     Active Substance: ACETAMINOPHEN\HYDROCODONE BITARTRATE
  12. CONCONUT OIT WITH TEA TREE [Concomitant]

REACTIONS (2)
  - Candida infection [None]
  - Atrophic glossitis [None]

NARRATIVE: CASE EVENT DATE: 20240307
